FAERS Safety Report 19482803 (Version 2)
Quarter: 2021Q3

REPORT INFORMATION
  Report Type: Spontaneous
  Country: IT (occurrence: US)
  Receive Date: 20210701
  Receipt Date: 20210706
  Transmission Date: 20211014
  Serious: Yes (Hospitalization)
  Sender: FDA-Public Use
  Company Number: IT-ALVOGEN-2021-ALVOGEN-117160

PATIENT
  Age: 41 Year
  Sex: Female

DRUGS (1)
  1. TENORETIC [Suspect]
     Active Substance: ATENOLOL\CHLORTHALIDONE
     Indication: PRODUCT USED FOR UNKNOWN INDICATION
     Route: 048
     Dates: start: 20210609, end: 20210611

REACTIONS (3)
  - Presyncope [Recovering/Resolving]
  - Throat tightness [Recovering/Resolving]
  - Hypersensitivity [Recovering/Resolving]

NARRATIVE: CASE EVENT DATE: 20210611
